FAERS Safety Report 6544231-3 (Version None)
Quarter: 2010Q1

REPORT INFORMATION
  Report Type: 
  Country: None (occurrence: None)
  Receive Date: 20100120
  Receipt Date: 20100113
  Transmission Date: 20100710
  Serious: Yes (Death)
  Sender: FDA-Public Use
  Company Number: US-MERCK-1001USA01471

PATIENT
  Age: 41 Year
  Sex: Female

DRUGS (5)
  1. REDISOL [Suspect]
     Route: 048
  2. ACETAMINOPHEN AND OXYCODONE HYDROCHLORIDE [Suspect]
     Route: 065
  3. VERAPAMIL [Suspect]
     Route: 065
  4. DULOXETINE HYDROCHLORIDE [Suspect]
     Route: 065
  5. PREGABALIN [Suspect]
     Route: 065

REACTIONS (4)
  - CARDIAC ARREST [None]
  - COMPLETED SUICIDE [None]
  - OVERDOSE [None]
  - RESPIRATORY ARREST [None]
